FAERS Safety Report 16023859 (Version 1)
Quarter: 2019Q1

REPORT INFORMATION
  Report Type: Spontaneous
  Country: FR (occurrence: FR)
  Receive Date: 20190301
  Receipt Date: 20190301
  Transmission Date: 20190418
  Serious: Yes (Hospitalization, Other)
  Sender: FDA-Public Use
  Company Number: FR-PFIZER INC-2019086106

PATIENT
  Age: 6 Year
  Sex: Male

DRUGS (1)
  1. ARACYTINE [Suspect]
     Active Substance: CYTARABINE
     Indication: MEDULLOBLASTOMA
     Dosage: 30 MG, CYCLIC (EVERY FOUR DAYS)
     Route: 037
     Dates: start: 20181231, end: 20190103

REACTIONS (3)
  - Cerebellar syndrome [Not Recovered/Not Resolved]
  - Product use in unapproved indication [Unknown]
  - Encephalitis [Not Recovered/Not Resolved]

NARRATIVE: CASE EVENT DATE: 20181231
